FAERS Safety Report 5339458-2 (Version None)
Quarter: 2007Q2

REPORT INFORMATION
  Report Type: 
  Country: None (occurrence: None)
  Receive Date: 20070525
  Receipt Date: 20070514
  Transmission Date: 20071010
  Serious: Yes (Hospitalization)
  Sender: FDA-Public Use
  Company Number: 2005JP002266

PATIENT
  Age: 7 Year
  Sex: Male
  Weight: 16 kg

DRUGS (12)
  1. PROGRAF [Suspect]
     Indication: DERMATITIS ATOPIC
     Dosage: SEE IMAGE
     Route: 061
     Dates: end: 20050805
  2. PROGRAF [Suspect]
     Indication: DERMATITIS ATOPIC
     Dosage: SEE IMAGE
     Route: 061
     Dates: start: 20051014, end: 20070406
  3. PROGRAF [Suspect]
     Indication: DERMATITIS ATOPIC
     Dosage: SEE IMAGE
     Route: 061
     Dates: start: 20070419
  4. ECLAR(DEPRODONE PROPIONATE) FORMULATION UNKNOWN [Suspect]
     Indication: DERMATITIS ATOPIC
     Dosage: SEE IMAGE
     Route: 061
     Dates: start: 20050610
  5. AZUNOL #1 (AZULENE) FORMULATION UNKNOWN [Suspect]
     Indication: DERMATITIS ATOPIC
     Dosage: SEE IMAGE
     Route: 061
     Dates: end: 20050610
  6. AZUNOL #1 (AZULENE) FORMULATION UNKNOWN [Suspect]
     Indication: DERMATITIS ATOPIC
     Dosage: SEE IMAGE
     Route: 061
     Dates: start: 20050611
  7. LOCOID FORMULATION UNKNOWN [Concomitant]
  8. LIDOMEX (PREDNISOLONE VALEROACETATE) FORMULATION UNKNOWN [Concomitant]
  9. PASTARON (UREA) FORMULATION UNKNOWN [Concomitant]
  10. CELTECT (OXATOMIDE) DRY SYRUP [Concomitant]
  11. ONON (PRANLUKAST) DRY SYRUP [Concomitant]
  12. ALESION (EPINASTINE HYDROCHLORIDE) DRY SYRUP [Concomitant]

REACTIONS (5)
  - APPLICATION SITE DERMATITIS [None]
  - CONDITION AGGRAVATED [None]
  - DERMATITIS ATOPIC [None]
  - DISEASE RECURRENCE [None]
  - ECZEMA IMPETIGINOUS [None]
